FAERS Safety Report 25469807 (Version 2)
Quarter: 2025Q4

REPORT INFORMATION
  Report Type: Spontaneous
  Country: US (occurrence: US)
  Receive Date: 20250623
  Receipt Date: 20251114
  Transmission Date: 20260117
  Serious: Yes (Disabling, Other)
  Sender: NOVO NORDISK
  Company Number: US-NOVOPROD-793075

PATIENT
  Sex: Female

DRUGS (1)
  1. NOVOLOG MIX 70/30 [Suspect]
     Active Substance: INSULIN ASPART
     Indication: Type 2 diabetes mellitus
     Dosage: 50 IU, TID
     Route: 058
     Dates: start: 2001

REACTIONS (7)
  - Disability [Unknown]
  - Atrial fibrillation [Unknown]
  - Diabetic foot [Unknown]
  - Tooth loss [Unknown]
  - Emotional disorder [Unknown]
  - Ill-defined disorder [Unknown]
  - Hypoglycaemia [Unknown]
